FAERS Safety Report 17146160 (Version 1)
Quarter: 2019Q4

REPORT INFORMATION
  Report Type: Spontaneous
  Country: SN (occurrence: SN)
  Receive Date: 20191212
  Receipt Date: 20191212
  Transmission Date: 20200122
  Serious: Yes (Other)
  Sender: FDA-Public Use
  Company Number: SN-MACLEODS PHARMACEUTICALS US LTD-MAC2018023907

PATIENT

DRUGS (2)
  1. HYDROQUINONE. [Suspect]
     Active Substance: HYDROQUINONE
     Indication: SKIN COSMETIC PROCEDURE
     Dosage: UNK
     Route: 061
  2. CLOBETASOL [Suspect]
     Active Substance: CLOBETASOL
     Indication: SKIN COSMETIC PROCEDURE
     Dosage: UNK, CLOBETASOL PROPIONATE
     Route: 061

REACTIONS (1)
  - Squamous cell carcinoma of skin [Recovering/Resolving]
